FAERS Safety Report 24584315 (Version 1)
Quarter: 2024Q4

REPORT INFORMATION
  Report Type: Spontaneous
  Country: US (occurrence: None)
  Receive Date: 20241105
  Receipt Date: 20241105
  Transmission Date: 20250114
  Serious: Yes (Death)
  Sender: Public
  Company Number: None

PATIENT
  Age: 36 Year
  Sex: Male

DRUGS (1)
  1. OZEMPIC [Suspect]
     Active Substance: SEMAGLUTIDE
     Indication: Weight decreased
     Dosage: OTHER ROUTE : INJECTION INTO STOMACH;?
     Route: 050

REACTIONS (7)
  - Indifference [None]
  - Suicidal ideation [None]
  - Lethargy [None]
  - Abnormal behaviour [None]
  - Depressed mood [None]
  - Completed suicide [None]
  - Therapy cessation [None]

NARRATIVE: CASE EVENT DATE: 20240503
